FAERS Safety Report 5107532-1 (Version None)
Quarter: 2006Q3

REPORT INFORMATION
  Report Type: 
  Country: None (occurrence: None)
  Receive Date: 20060913
  Receipt Date: 20060913
  Transmission Date: 20061208
  Serious: Yes (Other)
  Sender: FDA-Public Use
  Company Number: None

PATIENT
  Age: 64 Year
  Sex: Female
  Weight: 77.1115 kg

DRUGS (1)
  1. METHYLPHENIDATE HCL [Suspect]
     Indication: CEREBROVASCULAR ACCIDENT
     Dosage: 20 MG DAILY, AM PO
     Route: 048
     Dates: start: 20060713, end: 20060810

REACTIONS (10)
  - BLOOD GLUCOSE INCREASED [None]
  - DRUG INEFFECTIVE [None]
  - DRUG WITHDRAWAL SYNDROME [None]
  - GRAND MAL CONVULSION [None]
  - HYPERSOMNIA [None]
  - INSOMNIA [None]
  - MENTAL IMPAIRMENT [None]
  - PARTIAL SEIZURES [None]
  - PHARMACEUTICAL PRODUCT COMPLAINT [None]
  - THERAPEUTIC RESPONSE UNEXPECTED WITH DRUG SUBSTITUTION [None]
